FAERS Safety Report 12221326 (Version 1)
Quarter: 2016Q1

REPORT INFORMATION
  Report Type: Spontaneous
  Country: US (occurrence: None)
  Receive Date: 20160329
  Receipt Date: 20160329
  Transmission Date: 20160526
  Serious: Yes (Disabling)
  Sender: FDA-Public Use
  Company Number: None

PATIENT
  Age: 47 Year
  Sex: Male
  Weight: 79.38 kg

DRUGS (4)
  1. LICORICE ROOT [Concomitant]
  2. GABAPENTIN. [Concomitant]
     Active Substance: GABAPENTIN
  3. KELP [Concomitant]
     Active Substance: KELP
  4. CORTISONE [Suspect]
     Active Substance: CORTISONE\HYDROCORTISONE

REACTIONS (5)
  - Dizziness [None]
  - Unevaluable event [None]
  - Pain [None]
  - Visual acuity reduced [None]
  - Food allergy [None]
